FAERS Safety Report 4295366-X (Version None)
Quarter: 2004Q1

REPORT INFORMATION
  Report Type: 
  Country: None (occurrence: None)
  Receive Date: 20040216
  Receipt Date: 20030630
  Transmission Date: 20041129
  Serious: No
  Sender: FDA-Public Use
  Company Number: US-GLAXOSMITHKLINE-A0414750A

PATIENT

DRUGS (3)
  1. LAMICTAL [Suspect]
     Dosage: 25MG PER DAY
     Route: 048
     Dates: start: 20030601
  2. DEPAKOTE [Concomitant]
  3. LITHIUM CARBONATE [Concomitant]

REACTIONS (1)
  - JOINT SWELLING [None]
